FAERS Safety Report 5840616-9 (Version None)
Quarter: 2008Q3

REPORT INFORMATION
  Report Type: 
  Country: None (occurrence: None)
  Receive Date: 20080811
  Receipt Date: 20080807
  Transmission Date: 20090109
  Serious: Yes (Hospitalization)
  Sender: FDA-Public Use
  Company Number: US-ASTRAZENECA-2008UW15653

PATIENT
  Age: 69 Year
  Sex: Female
  Weight: 36.1 kg

DRUGS (6)
  1. FASLODEX [Suspect]
     Indication: BREAST CANCER METASTATIC
     Route: 030
  2. FASLODEX [Suspect]
     Indication: METASTATIC NEOPLASM
     Route: 030
  3. ZOMETA [Concomitant]
  4. NEXIUM [Concomitant]
     Route: 048
  5. COLACE [Concomitant]
  6. COMPAZINE [Concomitant]

REACTIONS (2)
  - HYPOAESTHESIA [None]
  - PAIN [None]
